FAERS Safety Report 18505230 (Version 2)
Quarter: 2020Q4

REPORT INFORMATION
  Report Type: Report from Study
  Country: US (occurrence: US)
  Receive Date: 20201116
  Receipt Date: 20201125
  Transmission Date: 20210114
  Serious: Yes (Life-Threatening)
  Sender: FDA-Public Use
  Company Number: US-ROCHE-2711574

PATIENT
  Age: 63 Year
  Sex: Female
  Weight: 84.7 kg

DRUGS (51)
  1. ROCEPHIN [Concomitant]
     Active Substance: CEFTRIAXONE SODIUM
     Indication: COVID-19
     Dates: start: 20200709, end: 20200709
  2. NIMBEX [Concomitant]
     Active Substance: CISATRACURIUM BESYLATE
     Indication: PARALYSIS
     Dates: start: 20200711, end: 20200711
  3. POTASSIUM CHLORIDE. [Concomitant]
     Active Substance: POTASSIUM CHLORIDE
     Indication: PROPHYLAXIS
     Dates: start: 20200710, end: 20200710
  4. DILAUDID [Concomitant]
     Active Substance: HYDROMORPHONE HYDROCHLORIDE
     Indication: PAIN
     Dates: start: 20200716, end: 20200721
  5. DEXTROSE. [Concomitant]
     Active Substance: DEXTROSE
     Indication: HYPOGLYCAEMIA
     Dates: start: 20200710, end: 20200725
  6. LOVENOX [Concomitant]
     Active Substance: ENOXAPARIN SODIUM
     Dates: start: 20200718, end: 20200720
  7. HUMALOG [Concomitant]
     Active Substance: INSULIN LISPRO
     Dates: start: 20200712, end: 20200723
  8. ZEMURON [Concomitant]
     Active Substance: ROCURONIUM BROMIDE
     Indication: SEDATION
     Dates: start: 20200710, end: 20200710
  9. LASIX [Concomitant]
     Active Substance: FUROSEMIDE
     Dates: start: 20200714, end: 20200714
  10. DIPRIVAN [Concomitant]
     Active Substance: PROPOFOL
     Indication: SEDATION
     Dates: start: 20200710, end: 20200804
  11. FENTANYL. [Concomitant]
     Active Substance: FENTANYL
     Indication: PAIN
     Dates: start: 20200710, end: 20200710
  12. SODIUM PHOSPHATE [Concomitant]
     Active Substance: SODIUM PHOSPHATE
     Dates: start: 20200710, end: 20200805
  13. REMDESIVIR. [Suspect]
     Active Substance: REMDESIVIR
     Indication: COVID-19 PNEUMONIA
     Dosage: THE DATE OF MOST RECENT DOSE OF REMDESIVIR PRIOR TO SAE (SERIOUS ADVERSE EVENT) AND AE ONSET: 10/JUL
     Route: 042
     Dates: start: 20200710
  14. LOVENOX [Concomitant]
     Active Substance: ENOXAPARIN SODIUM
     Indication: THROMBOSIS PROPHYLAXIS
     Dates: start: 20200715, end: 20200716
  15. LOVENOX [Concomitant]
     Active Substance: ENOXAPARIN SODIUM
     Dates: start: 20200717, end: 20200717
  16. HUMALOG [Concomitant]
     Active Substance: INSULIN LISPRO
     Indication: TYPE 2 DIABETES MELLITUS
     Dates: start: 20200710, end: 20200710
  17. MIRALAX [Concomitant]
     Active Substance: POLYETHYLENE GLYCOL 3350
     Indication: CONSTIPATION
     Dates: start: 20200712, end: 20200719
  18. POTASSIUM CHLORIDE. [Concomitant]
     Active Substance: POTASSIUM CHLORIDE
     Dates: start: 20200710, end: 20200710
  19. SENOKOT [Concomitant]
     Active Substance: SENNOSIDES
     Indication: CONSTIPATION
     Dates: start: 20200712, end: 20200719
  20. OFIRMEV [Concomitant]
     Active Substance: ACETAMINOPHEN
     Indication: PAIN
     Dates: start: 20200710, end: 20200710
  21. LANTUS [Concomitant]
     Active Substance: INSULIN GLARGINE
     Dates: start: 20200712, end: 20200715
  22. LANTUS [Concomitant]
     Active Substance: INSULIN GLARGINE
     Dates: start: 20200715, end: 20200715
  23. PERIDEX [Concomitant]
     Active Substance: CHLORHEXIDINE GLUCONATE
     Indication: DENTAL DISORDER PROPHYLAXIS
     Dates: start: 20200710, end: 20200804
  24. NOVOLIN R [Concomitant]
     Active Substance: INSULIN HUMAN
     Indication: TYPE 2 DIABETES MELLITUS
     Dates: start: 20200711, end: 20200711
  25. MAGNESIUM SULFATE. [Concomitant]
     Active Substance: MAGNESIUM SULFATE
     Indication: PROPHYLAXIS
     Dates: start: 20200710, end: 20200805
  26. LANSOPRAZOLE. [Concomitant]
     Active Substance: LANSOPRAZOLE
     Dates: start: 20200717, end: 20200805
  27. ZITHROMAX [Concomitant]
     Active Substance: AZITHROMYCIN DIHYDRATE
     Indication: COVID-19
     Dates: start: 20200709, end: 20200710
  28. LOVENOX [Concomitant]
     Active Substance: ENOXAPARIN SODIUM
     Indication: DEEP VEIN THROMBOSIS
     Dates: start: 20200710, end: 20200714
  29. PROTONIX [Concomitant]
     Active Substance: PANTOPRAZOLE SODIUM
     Dates: start: 20200711, end: 20200712
  30. PROTONIX [Concomitant]
     Active Substance: PANTOPRAZOLE SODIUM
     Dates: start: 20200713, end: 20200716
  31. POTASSIUM CHLORIDE. [Concomitant]
     Active Substance: POTASSIUM CHLORIDE
     Dates: start: 20200711, end: 20200805
  32. AMIDATE [Concomitant]
     Active Substance: ETOMIDATE
     Indication: SEDATION
     Dates: start: 20200710, end: 20200710
  33. TYLENOL [Concomitant]
     Active Substance: ACETAMINOPHEN
     Indication: PAIN
     Dates: start: 20200710, end: 20200721
  34. TYLENOL [Concomitant]
     Active Substance: ACETAMINOPHEN
     Indication: HEADACHE
  35. LANTUS [Concomitant]
     Active Substance: INSULIN GLARGINE
     Indication: TYPE 2 DIABETES MELLITUS
     Dates: start: 20200710, end: 20200712
  36. LANTUS [Concomitant]
     Active Substance: INSULIN GLARGINE
     Dates: start: 20200715, end: 20200716
  37. LANTUS [Concomitant]
     Active Substance: INSULIN GLARGINE
     Dates: start: 20200716, end: 20200717
  38. ZEMURON [Concomitant]
     Active Substance: ROCURONIUM BROMIDE
     Indication: PARALYSIS
  39. LEVOPHED [Concomitant]
     Active Substance: NOREPINEPHRINE BITARTRATE
     Indication: HYPOTENSION
     Dates: start: 20200710, end: 20200718
  40. DECADRON [Concomitant]
     Active Substance: DEXAMETHASONE
     Indication: PNEUMONIA
     Dates: start: 20200714, end: 20200723
  41. SYNTHROID [Concomitant]
     Active Substance: LEVOTHYROXINE SODIUM
     Indication: HYPOTHYROIDISM
     Dates: start: 20200714, end: 20200716
  42. SYNTHROID [Concomitant]
     Active Substance: LEVOTHYROXINE SODIUM
     Dates: start: 20200717, end: 20200804
  43. DULCOLAX NOS [Concomitant]
     Active Substance: BISACODYL OR DOCUSATE SODIUM
     Indication: CONSTIPATION
     Dates: start: 20200714, end: 20200714
  44. NIMBEX [Concomitant]
     Active Substance: CISATRACURIUM BESYLATE
     Indication: SEDATION
     Dates: start: 20200711, end: 20200713
  45. TRANDATE [Concomitant]
     Active Substance: LABETALOL HYDROCHLORIDE
     Indication: HYPERTENSION
     Dates: start: 20200710, end: 20200804
  46. FENTANYL. [Concomitant]
     Active Substance: FENTANYL
     Dates: start: 20200710, end: 20200716
  47. TOCILIZUMAB. [Suspect]
     Active Substance: TOCILIZUMAB
     Indication: COVID-19 PNEUMONIA
     Dosage: DATE OF MOST RECENT DOSE TOCILIZUMAB (VOLUME 100 ML) PRIOR TO SAE/AE ONSET: 10/JUL/2020 AT 18.29 HRS
     Route: 042
     Dates: start: 20200710
  48. APRESOLINE HYDROCHLORIDE [Concomitant]
     Active Substance: HYDRALAZINE HYDROCHLORIDE
     Indication: HYPERTENSION
     Dates: start: 20200710, end: 20200821
  49. LASIX [Concomitant]
     Active Substance: FUROSEMIDE
     Indication: ACUTE KIDNEY INJURY
     Dates: start: 20200712, end: 20200712
  50. DECADRON [Concomitant]
     Active Substance: DEXAMETHASONE
     Indication: DYSPNOEA
  51. VERSED [Concomitant]
     Active Substance: MIDAZOLAM HYDROCHLORIDE
     Indication: SEDATION
     Dates: start: 20200711, end: 20200714

REACTIONS (1)
  - Shock [Recovered/Resolved]

NARRATIVE: CASE EVENT DATE: 20200710
